FAERS Safety Report 5262079-7 (Version None)
Quarter: 2007Q1

REPORT INFORMATION
  Report Type: 
  Country: None (occurrence: None)
  Receive Date: 20070311
  Receipt Date: 20070228
  Transmission Date: 20070707
  Serious: Yes (Hospitalization)
  Sender: FDA-Public Use
  Company Number: 2006UW26519

PATIENT
  Age: 47 Year
  Sex: Female
  Weight: 65.9 kg

DRUGS (3)
  1. SEROQUEL [Suspect]
     Indication: BIPOLAR DISORDER
     Route: 048
     Dates: start: 19990101
  2. HALDOL [Concomitant]
     Dates: start: 19921001
  3. AMITRIPTYLINE HCL [Concomitant]
     Dates: start: 19920322

REACTIONS (2)
  - DIABETES MELLITUS [None]
  - SELF-INJURIOUS IDEATION [None]
